FAERS Safety Report 7098205-7 (Version None)
Quarter: 2010Q4

REPORT INFORMATION
  Report Type: 
  Country: None (occurrence: None)
  Receive Date: 20101112
  Receipt Date: 20101104
  Transmission Date: 20110411
  Serious: Yes (Hospitalization)
  Sender: FDA-Public Use
  Company Number: US-US-EMD SERONO, INC.-238635K09USA

PATIENT
  Sex: Female
  Weight: 58 kg

DRUGS (7)
  1. REBIF [Suspect]
     Indication: MULTIPLE SCLEROSIS
     Route: 058
     Dates: start: 20030909, end: 20090701
  2. REBIF [Suspect]
     Dates: end: 20101001
  3. CLONAZEPAM [Concomitant]
     Indication: ANXIETY
     Route: 048
  4. CLONAZEPAM [Concomitant]
     Indication: DEPRESSION
  5. CLONAZEPAM [Concomitant]
     Indication: PAIN
  6. PAROXETINE HCL [Concomitant]
     Indication: ANTIDEPRESSANT THERAPY
     Route: 048
  7. NEURONTIN [Concomitant]
     Indication: PAIN
     Route: 048

REACTIONS (2)
  - DRUG ADMINISTRATION ERROR [None]
  - FALL [None]
